FAERS Safety Report 6197974-8 (Version None)
Quarter: 2009Q2

REPORT INFORMATION
  Report Type: 
  Country: None (occurrence: None)
  Receive Date: 20090521
  Receipt Date: 20090512
  Transmission Date: 20091009
  Serious: Yes (Hospitalization)
  Sender: FDA-Public Use
  Company Number: US-JNJFOC-20090407018

PATIENT
  Sex: Female
  Weight: 74.75 kg

DRUGS (5)
  1. DOXIL [Suspect]
     Indication: MULTIPLE MYELOMA
     Route: 042
  2. BORTEZOMIB [Suspect]
     Route: 065
  3. BORTEZOMIB [Suspect]
     Indication: MULTIPLE MYELOMA
     Route: 065
  4. ACYCLOVIR SODIUM [Concomitant]
     Route: 065
  5. PROCHLORPERAZINE [Concomitant]
     Indication: NAUSEA
     Route: 065

REACTIONS (4)
  - BACTERAEMIA [None]
  - CYANOSIS [None]
  - PLATELET COUNT DECREASED [None]
  - SEPSIS [None]
